FAERS Safety Report 10264390 (Version 2)
Quarter: 2014Q3

REPORT INFORMATION
  Report Type: Report from Study
  Country: DE (occurrence: DE)
  Receive Date: 20140627
  Receipt Date: 20140711
  Transmission Date: 20150326
  Serious: Yes (Other)
  Sender: FDA-Public Use
  Company Number: DE-ROCHE-1425308

PATIENT
  Age: 85 Year
  Sex: Female

DRUGS (4)
  1. SULFUR HEXAFLUORIDE [Suspect]
     Active Substance: SULFUR HEXAFLUORIDE
     Indication: PRODUCT USED FOR UNKNOWN INDICATION
     Route: 050
     Dates: start: 2006
  2. TETRACAINE [Concomitant]
     Active Substance: TETRACAINE\TETRACAINE HYDROCHLORIDE
     Route: 065
     Dates: start: 2006
  3. POVIDONE-IODINE. [Concomitant]
     Active Substance: POVIDONE-IODINE
     Route: 065
     Dates: start: 2006
  4. ALTEPLASE [Suspect]
     Active Substance: ALTEPLASE
     Indication: AGE-RELATED MACULAR DEGENERATION
     Route: 050
     Dates: start: 2006

REACTIONS (1)
  - Non-infectious endophthalmitis [Unknown]
